FAERS Safety Report 12475363 (Version 2)
Quarter: 2016Q3

REPORT INFORMATION
  Report Type: Report from Study
  Country: GB (occurrence: GB)
  Receive Date: 20160617
  Receipt Date: 20160914
  Transmission Date: 20161109
  Serious: Yes (Other)
  Sender: FDA-Public Use
  Company Number: GB-JNJFOC-20160610224

PATIENT
  Age: 52 Year
  Sex: Female

DRUGS (1)
  1. SIMPONI [Suspect]
     Active Substance: GOLIMUMAB
     Indication: PRODUCT USED FOR UNKNOWN INDICATION
     Route: 058

REACTIONS (5)
  - Pharyngitis [Unknown]
  - Therapeutic response decreased [Unknown]
  - Lower respiratory tract infection [Unknown]
  - Arthropathy [Unknown]
  - Fatigue [Unknown]

NARRATIVE: CASE EVENT DATE: 201604
